FAERS Safety Report 24796323 (Version 1)
Quarter: 2025Q1

REPORT INFORMATION
  Report Type: Spontaneous
  Country: US (occurrence: US)
  Receive Date: 20250101
  Receipt Date: 20250101
  Transmission Date: 20250409
  Serious: No
  Sender: SANOFI AVENTIS
  Company Number: US-SA-2024SA384083

PATIENT
  Age: 41 Year
  Sex: Female
  Weight: 73.64 kg

DRUGS (4)
  1. DUPIXENT [Suspect]
     Active Substance: DUPILUMAB
     Indication: Eosinophilic oesophagitis
     Dosage: 300 MG, QW
     Route: 058
     Dates: start: 202304
  2. OMEPRAZOLE [Concomitant]
     Active Substance: OMEPRAZOLE
  3. PEPCID [Concomitant]
     Active Substance: FAMOTIDINE
  4. TUMS [Concomitant]
     Active Substance: CALCIUM CARBONATE

REACTIONS (1)
  - Eosinophilic oesophagitis [Recovering/Resolving]

NARRATIVE: CASE EVENT DATE: 20241101
